FAERS Safety Report 4469448-3 (Version None)
Quarter: 2004Q4

REPORT INFORMATION
  Report Type: 
  Country: None (occurrence: None)
  Receive Date: 20041005
  Receipt Date: 20040927
  Transmission Date: 20050328
  Serious: Yes (Hospitalization)
  Sender: FDA-Public Use
  Company Number: KII-2004-0013459

PATIENT
  Age: 82 Year
  Sex: Female

DRUGS (1)
  1. OXYCONTIN [Suspect]
     Indication: DRUG USE FOR UNKNOWN INDICATION
     Dosage: SEE TEXT, ORAL
     Route: 048

REACTIONS (6)
  - BLOOD PRESSURE SYSTOLIC INCREASED [None]
  - CONFUSIONAL STATE [None]
  - MEDICATION ERROR [None]
  - OVERDOSE [None]
  - RESPIRATORY RATE DECREASED [None]
  - SOMNOLENCE [None]
